FAERS Safety Report 22707516 (Version 12)
Quarter: 2023Q4

REPORT INFORMATION
  Report Type: Report from Study
  Country: GB (occurrence: GB)
  Receive Date: 20230714
  Receipt Date: 20231221
  Transmission Date: 20240110
  Serious: Yes (Other)
  Sender: FDA-Public Use
  Company Number: GB-ABBVIE-4341386

PATIENT
  Age: 70 Year
  Sex: Male

DRUGS (7)
  1. CARBIDOPA\LEVODOPA [Suspect]
     Active Substance: CARBIDOPA\LEVODOPA
     Indication: Parkinson^s disease
     Dosage: MD:11.4MLS, CR:2.9, ED: 1.8, 20MGS/5MGS?FIRST ADMIN DATE 2023
     Route: 050
     Dates: start: 2023, end: 20230801
  2. CARBIDOPA\LEVODOPA [Suspect]
     Active Substance: CARBIDOPA\LEVODOPA
     Dosage: DUODOPA 20MGS/5MGS; MD: 11.4, CR: 2.9, ED: 1.6?FIRST ADMIN DATE 2023?LAST ADMIN DATE 2023
     Route: 050
  3. CARBIDOPA\LEVODOPA [Suspect]
     Active Substance: CARBIDOPA\LEVODOPA
     Dosage: MD: 11.4, CR: 3.2MLS ED: 2.0MLS,20MG/5MG
     Route: 050
     Dates: start: 20230801
  4. CARBIDOPA\LEVODOPA [Suspect]
     Active Substance: CARBIDOPA\LEVODOPA
     Dosage: MD:11.4MLS, CR:2.9, ED: 1.8, 20MGS/5MGS?FIRST ADMIN DATE 2023?LAST ADMIN DATE 2023
     Route: 050
  5. BENSERAZIDE HYDROCHLORIDE\LEVODOPA [Concomitant]
     Active Substance: BENSERAZIDE HYDROCHLORIDE\LEVODOPA
     Indication: Product used for unknown indication
     Dosage: 62.5 MG
  6. SINEMET CR [Concomitant]
     Active Substance: CARBIDOPA\LEVODOPA
     Indication: Product used for unknown indication
     Dosage: 25/100MG?SINEMET AS AND WHEN REQUIRED AT NIGHT
  7. PREGABALIN [Concomitant]
     Active Substance: PREGABALIN
     Indication: Product used for unknown indication

REACTIONS (38)
  - Suicidal ideation [Recovered/Resolved]
  - Therapeutic product effect incomplete [Unknown]
  - Mental disorder [Unknown]
  - Poor quality sleep [Unknown]
  - Plantar fasciitis [Not Recovered/Not Resolved]
  - Muscle rigidity [Unknown]
  - Psychiatric symptom [Unknown]
  - On and off phenomenon [Not Recovered/Not Resolved]
  - Neuropathy peripheral [Unknown]
  - Gait disturbance [Unknown]
  - Fatigue [Unknown]
  - Tremor [Unknown]
  - General symptom [Unknown]
  - Obsessive-compulsive disorder [Unknown]
  - Therapeutic response shortened [Not Recovered/Not Resolved]
  - Bradykinesia [Unknown]
  - Mobility decreased [Unknown]
  - Pain in extremity [Not Recovered/Not Resolved]
  - Brain fog [Unknown]
  - Haemorrhage [Unknown]
  - Unevaluable event [Unknown]
  - Depression [Unknown]
  - Dyskinesia [Unknown]
  - Depressed mood [Unknown]
  - Restlessness [Unknown]
  - Disturbance in attention [Unknown]
  - Device colour issue [Unknown]
  - Anxiety [Not Recovered/Not Resolved]
  - Weight decreased [Recovered/Resolved]
  - Feeling abnormal [Unknown]
  - Fall [Unknown]
  - Face injury [Not Recovered/Not Resolved]
  - Asthenia [Unknown]
  - Mass [Unknown]
  - Fear of falling [Unknown]
  - Gait inability [Unknown]
  - Fatigue [Not Recovered/Not Resolved]
  - Muscular weakness [Unknown]

NARRATIVE: CASE EVENT DATE: 20230101
